FAERS Safety Report 4307218-7 (Version None)
Quarter: 2004Q1

REPORT INFORMATION
  Report Type: 
  Country: None (occurrence: None)
  Receive Date: 20040225
  Receipt Date: 20040216
  Transmission Date: 20041129
  Serious: Yes (Hospitalization)
  Sender: FDA-Public Use
  Company Number: TPA2004A00194

PATIENT
  Age: 74 Year
  Sex: Male
  Weight: 72.5755 kg

DRUGS (3)
  1. ACTOS [Suspect]
     Indication: DIABETES MELLITUS NON-INSULIN-DEPENDENT
     Dosage: 15 MG, 1 IN 1 D, PER ORAL
     Route: 048
     Dates: start: 20020216, end: 20031101
  2. ACTOS [Suspect]
     Indication: DIABETES MELLITUS NON-INSULIN-DEPENDENT
     Dosage: 15 MG, 1 IN 1 D, PER ORAL
     Route: 048
     Dates: start: 20031101
  3. NOVOLIN 70/30 (HUMAN MIXTARD) (34 IU (INTERNATIONAL UNIT)) [Concomitant]

REACTIONS (8)
  - COLLAPSE OF LUNG [None]
  - DYSPEPSIA [None]
  - IATROGENIC INJURY [None]
  - LUNG NEOPLASM MALIGNANT [None]
  - MEDICATION ERROR [None]
  - METASTASES TO BONE [None]
  - NAUSEA [None]
  - NEUROPATHY [None]
